FAERS Safety Report 8270201-3 (Version None)
Quarter: 2012Q2

REPORT INFORMATION
  Report Type: 
  Country: None (occurrence: None)
  Receive Date: 20120410
  Receipt Date: 20120402
  Transmission Date: 20120825
  Serious: Yes (Hospitalization)
  Sender: FDA-Public Use
  Company Number: FR-B.I. PHARMACEUTICALS,INC./RIDGEFIELD-2012-FF-00335FF

PATIENT
  Sex: Male
  Weight: 68 kg

DRUGS (2)
  1. PRADAXA [Suspect]
     Dosage: 220 MG
     Route: 048
     Dates: start: 20120107, end: 20120109
  2. PREVISCAN [Suspect]
     Route: 048
     Dates: start: 20070101, end: 20120105

REACTIONS (2)
  - ISCHAEMIC STROKE [None]
  - DRUG INEFFECTIVE [None]
